FAERS Safety Report 10404670 (Version 2)
Quarter: 2014Q3

REPORT INFORMATION
  Report Type: Spontaneous
  Country: US (occurrence: US)
  Receive Date: 20140824
  Receipt Date: 20140824
  Transmission Date: 20150326
  Serious: Yes (Hospitalization, Other)
  Sender: FDA-Public Use
  Company Number: US-009507513-2010SP000521

PATIENT
  Sex: Female
  Weight: 88.91 kg

DRUGS (3)
  1. NUVARING [Suspect]
     Active Substance: ETHINYL ESTRADIOL\ETONOGESTREL
     Indication: MENSTRUAL CYCLE MANAGEMENT
  2. METRONIDAZOLE. [Concomitant]
     Active Substance: METRONIDAZOLE
     Indication: VAGINAL DISCHARGE
     Dosage: 500 MG, BID
     Dates: start: 20071217
  3. NUVARING [Suspect]
     Active Substance: ETHINYL ESTRADIOL\ETONOGESTREL
     Indication: CONTRACEPTION
     Route: 067
     Dates: start: 20071207, end: 20071228

REACTIONS (2)
  - Pulmonary embolism [Recovering/Resolving]
  - Cervical dysplasia [Unknown]

NARRATIVE: CASE EVENT DATE: 20071228
